FAERS Safety Report 7065826-7 (Version None)
Quarter: 2010Q4

REPORT INFORMATION
  Report Type: 
  Country: None (occurrence: None)
  Receive Date: 20101027
  Receipt Date: 20101021
  Transmission Date: 20110411
  Serious: Yes (Death, Hospitalization, Other)
  Sender: FDA-Public Use
  Company Number: JP-ELI_LILLY_AND_COMPANY-JP201009007730

PATIENT
  Sex: Male
  Weight: 53 kg

DRUGS (18)
  1. GEMZAR [Suspect]
     Indication: PANCREATIC CARCINOMA STAGE IV
     Dosage: 1600 MG, OTHER
     Route: 042
     Dates: start: 20100621
  2. GEMZAR [Suspect]
     Dosage: 1300 MG, OTHER
     Route: 042
     Dates: end: 20100830
  3. BEZATOL - SLOW RELEASE [Concomitant]
     Dosage: 200 MG, 2/D
     Route: 048
     Dates: start: 19990421
  4. ALMARL [Concomitant]
     Dosage: 10 MG, 2/D
     Route: 048
     Dates: start: 19990528
  5. CALSLOT [Concomitant]
     Dosage: 20 MG, DAILY (1/D)
     Route: 048
     Dates: start: 19990528
  6. EPADEL-S [Concomitant]
     Dosage: 600 MG, 3/D
     Route: 048
     Dates: start: 20001122
  7. MAGLAX [Concomitant]
     Dosage: 330 MG, DAILY (1/D)
     Route: 048
     Dates: start: 20090226
  8. URINORM [Concomitant]
     Dosage: 25 MG, DAILY (1/D)
     Route: 048
  9. URALYT U [Concomitant]
     Dosage: 2 D/F, 3/D
     Route: 048
  10. DEPAS [Concomitant]
     Route: 048
  11. EURODIN [Concomitant]
     Route: 048
  12. LENDORMIN [Concomitant]
     Route: 048
  13. LASIX [Concomitant]
     Dosage: 20 MG, DAILY (1/D)
     Route: 048
     Dates: start: 20100614
  14. ALDACTONE [Concomitant]
     Dosage: 25 MG, DAILY (1/D)
     Route: 048
     Dates: start: 20100629
  15. 8-HOUR BAYER [Concomitant]
     Dosage: 100 MG, DAILY (1/D)
     Route: 048
     Dates: start: 20100712
  16. MUCOSTA [Concomitant]
     Route: 048
  17. LOXONIN [Concomitant]
     Route: 048
  18. BRONUCK [Concomitant]
     Route: 047

REACTIONS (5)
  - BLOOD LACTATE DEHYDROGENASE INCREASED [None]
  - INTERSTITIAL LUNG DISEASE [None]
  - PYREXIA [None]
  - RESTLESSNESS [None]
  - SUICIDE ATTEMPT [None]
